FAERS Safety Report 4736675-7 (Version None)
Quarter: 2005Q3

REPORT INFORMATION
  Report Type: 
  Country: None (occurrence: None)
  Receive Date: 20050808
  Receipt Date: 20050513
  Transmission Date: 20060218
  Serious: Yes (Life-Threatening, Hospitalization, Disabling, Other)
  Sender: FDA-Public Use
  Company Number: DE-BRACCO-BRO-008696

PATIENT
  Age: 68 Year
  Sex: Male

DRUGS (10)
  1. MULTIHANCE [Suspect]
     Indication: EMBOLIC STROKE
     Route: 042
     Dates: start: 20050501, end: 20050501
  2. MULTIHANCE [Suspect]
     Indication: NUCLEAR MAGNETIC RESONANCE IMAGING BRAIN
     Route: 042
     Dates: start: 20050501, end: 20050501
  3. MAGNEVIST [Suspect]
     Indication: EMBOLIC STROKE
     Route: 042
     Dates: start: 20050501, end: 20050501
  4. MAGNEVIST [Suspect]
     Indication: NUCLEAR MAGNETIC RESONANCE IMAGING BRAIN
     Route: 042
     Dates: start: 20050501, end: 20050501
  5. GADOVIST [Suspect]
     Indication: EMBOLIC STROKE
     Route: 042
     Dates: start: 20050501, end: 20050501
  6. GADOVIST [Suspect]
     Indication: NUCLEAR MAGNETIC RESONANCE IMAGING BRAIN
     Route: 042
     Dates: start: 20050501, end: 20050501
  7. GENTAMICIN [Concomitant]
     Route: 050
     Dates: start: 20050503, end: 20050509
  8. VANCOMYCIN [Concomitant]
     Route: 050
     Dates: start: 20050504, end: 20050509
  9. CEFOTAXIME [Concomitant]
     Route: 050
     Dates: start: 20050501, end: 20050508
  10. CLINDAMYCIN [Concomitant]
     Route: 050
     Dates: start: 20050501, end: 20050507

REACTIONS (1)
  - RENAL FAILURE ACUTE [None]
